FAERS Safety Report 5769978-8 (Version None)
Quarter: 2008Q2

REPORT INFORMATION
  Report Type: 
  Country: None (occurrence: None)
  Receive Date: 20080613
  Receipt Date: 20080514
  Transmission Date: 20081010
  Serious: No
  Sender: FDA-Public Use
  Company Number: US-ABBOTT-08P-163-0447660-00

PATIENT
  Sex: Female
  Weight: 81.72 kg

DRUGS (9)
  1. HUMIRA [Suspect]
     Indication: RHEUMATOID ARTHRITIS
     Route: 058
     Dates: start: 20070522, end: 20080403
  2. HUMIRA [Suspect]
     Route: 058
     Dates: start: 20080512
  3. LEFLUNOMIDE [Concomitant]
     Indication: RHEUMATOID ARTHRITIS
     Route: 048
  4. MELOXICAM [Concomitant]
     Indication: ARTHRITIS
     Route: 048
  5. FOLIC ACID [Concomitant]
     Indication: DRUG USE FOR UNKNOWN INDICATION
     Route: 048
  6. ALENDRONATE SODIUM [Concomitant]
     Indication: OSTEOPOROSIS
     Route: 048
  7. CALCIUM [Concomitant]
     Indication: MINERAL SUPPLEMENTATION
     Route: 048
  8. ASCORBIC ACID [Concomitant]
     Indication: VITAMIN SUPPLEMENTATION
     Route: 048
  9. GLUCOSAMINE [Concomitant]
     Indication: NUTRITIONAL SUPPORT
     Route: 048

REACTIONS (9)
  - ARTHRALGIA [None]
  - BRONCHITIS [None]
  - CHILLS [None]
  - DYSURIA [None]
  - EAR INFECTION [None]
  - NASAL CONGESTION [None]
  - PYREXIA [None]
  - SINUSITIS [None]
  - URINARY TRACT INFECTION [None]
